FAERS Safety Report 7528961-2 (Version None)
Quarter: 2011Q2

REPORT INFORMATION
  Report Type: 
  Country: None (occurrence: None)
  Receive Date: 20110607
  Receipt Date: 20110601
  Transmission Date: 20111010
  Serious: Yes (Death, Other)
  Sender: FDA-Public Use
  Company Number: US-PFIZER INC-2011119240

PATIENT
  Sex: Male

DRUGS (1)
  1. GLUCOTROL [Suspect]
     Dosage: 10 MG, UNK

REACTIONS (1)
  - DEATH [None]
